FAERS Safety Report 10179143 (Version 2)
Quarter: 2014Q2

REPORT INFORMATION
  Report Type: Spontaneous
  Country: US (occurrence: US)
  Receive Date: 20140519
  Receipt Date: 20140519
  Transmission Date: 20141212
  Serious: Yes (Other)
  Sender: FDA-Public Use
  Company Number: PHHY2013US111320

PATIENT
  Age: 49 Year
  Sex: Male

DRUGS (8)
  1. BACLOFEN INTRATHECAL [Suspect]
     Indication: MUSCLE SPASTICITY
     Dosage: 609.4 UG/DAY
     Route: 037
     Dates: start: 20121222
  2. BACLOFEN INTRATHECAL [Suspect]
     Dosage: 696.2 UG/DAY
     Route: 037
  3. BACLOFEN INTRATHECAL [Suspect]
     Dosage: 767.9 UG/DAY
     Route: 037
  4. BACLOFEN INTRATHECAL [Suspect]
     Dosage: 500 UG, DAY
  5. BACLOFEN INTRATHECAL [Suspect]
     Dosage: UNK UKN, UNK (DECREASED BY 12 %)
     Route: 037
     Dates: start: 20140305
  6. BACLOFEN [Suspect]
     Dosage: UNK UKN, UNK
     Route: 048
  7. LIORESAL INTRATECAL [Suspect]
     Dosage: UNK UKN, UNK
     Route: 037
  8. TIZANIDINE [Suspect]
     Dosage: 4 MG, AT BEDTIME

REACTIONS (16)
  - Performance status decreased [Unknown]
  - Feeling of body temperature change [Unknown]
  - Abasia [Unknown]
  - Patient-device incompatibility [Unknown]
  - Fatigue [Unknown]
  - Muscular weakness [Unknown]
  - Pyrexia [Not Recovered/Not Resolved]
  - Pain [Unknown]
  - Muscle spasms [Unknown]
  - Musculoskeletal stiffness [Unknown]
  - Muscle spasticity [Unknown]
  - Therapeutic response decreased [Unknown]
  - Headache [Unknown]
  - Malaise [Unknown]
  - Memory impairment [Unknown]
  - Hyperhidrosis [Unknown]
